FAERS Safety Report 18277579 (Version 1)
Quarter: 2020Q3

REPORT INFORMATION
  Report Type: Spontaneous
  Country: US (occurrence: US)
  Receive Date: 20200916
  Receipt Date: 20200916
  Transmission Date: 20201103
  Serious: No
  Sender: FDA-Public Use
  Company Number: None

PATIENT
  Age: 63 Year
  Sex: Female
  Weight: 100.8 kg

DRUGS (1)
  1. LEVOTHROID [Suspect]
     Active Substance: LEVOTHYROXINE SODIUM
     Indication: POST PROCEDURAL HYPOTHYROIDISM
     Route: 048
     Dates: start: 20191223, end: 20200813

REACTIONS (1)
  - Product solubility abnormal [None]

NARRATIVE: CASE EVENT DATE: 20200813
